FAERS Safety Report 4297406-0 (Version None)
Quarter: 2004Q1

REPORT INFORMATION
  Report Type: 
  Country: None (occurrence: None)
  Receive Date: 20040217
  Receipt Date: 20040217
  Transmission Date: 20041129
  Serious: Yes (Hospitalization)
  Sender: FDA-Public Use
  Company Number: None

PATIENT
  Sex: Female
  Weight: 113.3993 kg

DRUGS (2)
  1. COUMADIN [Suspect]
     Indication: ATRIAL FIBRILLATION
     Dosage: PO , QD [PRIOR TO ADMISSION]
     Route: 048
  2. GLUCOPHAGE [Concomitant]

REACTIONS (4)
  - ECCHYMOSIS [None]
  - EPISTAXIS [None]
  - INTERNATIONAL NORMALISED RATIO INCREASED [None]
  - PROTHROMBIN TIME PROLONGED [None]
